FAERS Safety Report 9687929 (Version 1)
Quarter: 2013Q4

REPORT INFORMATION
  Report Type: Spontaneous
  Country: FR (occurrence: None)
  Receive Date: 20131112
  Receipt Date: 20131112
  Transmission Date: 20140711
  Serious: Yes (Hospitalization)
  Sender: FDA-Public Use
  Company Number: ENTC2013-0428

PATIENT
  Age: 79 Year
  Sex: Male

DRUGS (10)
  1. STALEVO (LEVODOPA, CARBIDOPA, ENTACAPONE) [Suspect]
     Indication: PARKINSON^S DISEASE
     Dates: start: 20130528
  2. PREVISCAN [Concomitant]
  3. KARDEGIC [Concomitant]
  4. PERINDOPRIL [Concomitant]
  5. IKOREL [Concomitant]
  6. AMLOR [Concomitant]
  7. SEROPLEX [Concomitant]
  8. DOMPERIDONE [Concomitant]
  9. LEVEMIR [Concomitant]
  10. TRINIPATCH [Concomitant]

REACTIONS (3)
  - Diarrhoea [None]
  - Weight decreased [None]
  - Hypokalaemia [None]
